FAERS Safety Report 6267179-0 (Version None)
Quarter: 2009Q3

REPORT INFORMATION
  Report Type: 
  Country: None (occurrence: None)
  Receive Date: 20090714
  Receipt Date: 20090708
  Transmission Date: 20100115
  Serious: No
  Sender: FDA-Public Use
  Company Number: US-JNJFOC-20090703482

PATIENT
  Sex: Male
  Weight: 90.72 kg

DRUGS (4)
  1. DURAGESIC-100 [Suspect]
     Indication: BACK PAIN
     Route: 062
  2. LYRICA [Concomitant]
     Indication: PAIN
     Route: 048
  3. OPANA [Concomitant]
     Indication: PAIN
     Route: 048
  4. SKELAXIN [Concomitant]
     Indication: MUSCLE TIGHTNESS
     Route: 048

REACTIONS (2)
  - HYPERHIDROSIS [None]
  - INAPPROPRIATE SCHEDULE OF DRUG ADMINISTRATION [None]
